FAERS Safety Report 6485752-1 (Version None)
Quarter: 2009Q4

REPORT INFORMATION
  Report Type: 
  Country: None (occurrence: None)
  Receive Date: 20091204
  Receipt Date: 20091201
  Transmission Date: 20100525
  Serious: Yes (Death)
  Sender: FDA-Public Use
  Company Number: FABR-1001074

PATIENT
  Age: 47 Year
  Sex: Male

DRUGS (1)
  1. FABRAZYME [Suspect]
     Indication: FABRY'S DISEASE
     Dosage: 40 MG, Q3W, INTRAVENOUS
     Route: 042
     Dates: start: 20040101, end: 20091112

REACTIONS (7)
  - ACCIDENT [None]
  - FALL [None]
  - FEELING HOT [None]
  - FLUSHING [None]
  - HEAD INJURY [None]
  - INFUSION RELATED REACTION [None]
  - NECK INJURY [None]
